FAERS Safety Report 12248255 (Version 1)
Quarter: 2016Q2

REPORT INFORMATION
  Report Type: Spontaneous
  Country: US (occurrence: None)
  Receive Date: 20160407
  Receipt Date: 20160407
  Transmission Date: 20160815
  Serious: No
  Sender: FDA-Public Use
  Company Number: None

PATIENT
  Sex: Female

DRUGS (2)
  1. TOUJEO [Suspect]
     Active Substance: INSULIN GLARGINE
  2. HUMALOG [Suspect]
     Active Substance: INSULIN LISPRO

REACTIONS (9)
  - Stress [None]
  - Glycosylated haemoglobin increased [None]
  - Drug ineffective [None]
  - Headache [None]
  - Blood glucose fluctuation [None]
  - Immobile [None]
  - Tremor [None]
  - Feeling abnormal [None]
  - Disturbance in attention [None]
